FAERS Safety Report 14935176 (Version 2)
Quarter: 2018Q2

REPORT INFORMATION
  Report Type: Other
  Country: US (occurrence: US)
  Receive Date: 20180524
  Receipt Date: 20180607
  Transmission Date: 20180711
  Serious: No
  Sender: FDA-Public Use
  Company Number: US-ACORDA-ACO_148631_2018

PATIENT
  Sex: Male

DRUGS (2)
  1. AMPYRA [Suspect]
     Active Substance: DALFAMPRIDINE
     Indication: MULTIPLE SCLEROSIS
  2. AMPYRA [Suspect]
     Active Substance: DALFAMPRIDINE
     Indication: DEMYELINATION
     Dosage: 10 MG, BID
     Route: 048

REACTIONS (3)
  - Therapy cessation [Unknown]
  - Adverse drug reaction [Unknown]
  - Product use in unapproved indication [Unknown]
